FAERS Safety Report 8112768-1 (Version None)
Quarter: 2012Q1

REPORT INFORMATION
  Report Type: 
  Country: None (occurrence: None)
  Receive Date: 20120203
  Receipt Date: 20120131
  Transmission Date: 20120608
  Serious: No
  Sender: FDA-Public Use
  Company Number: US-BAYER-2012-010784

PATIENT
  Sex: Male
  Weight: 77.098 kg

DRUGS (1)
  1. BETASERON [Suspect]
     Indication: MULTIPLE SCLEROSIS
     Dosage: 0.25 MG/ML, QOD
     Route: 058

REACTIONS (3)
  - INJECTION SITE ERYTHEMA [None]
  - VISION BLURRED [None]
  - DEPRESSED MOOD [None]
